FAERS Safety Report 8438121-9 (Version None)
Quarter: 2012Q2

REPORT INFORMATION
  Report Type: 
  Country: None (occurrence: None)
  Receive Date: 20120614
  Receipt Date: 20120611
  Transmission Date: 20120825
  Serious: Yes (Death, Hospitalization)
  Sender: FDA-Public Use
  Company Number: PHHY2012GB046498

PATIENT
  Age: 66 Year
  Sex: Female

DRUGS (14)
  1. ADCAL-D3 [Suspect]
     Indication: OSTEOPOROSIS
     Dosage: 1 DF, DAILY
     Dates: start: 20110525
  2. RAMIPRIL [Concomitant]
     Indication: HYPERTENSION
     Dosage: 5 MG, UNK
     Route: 048
     Dates: start: 20011112
  3. TOLTERODINE TARTRATE [Concomitant]
     Indication: URINARY INCONTINENCE
     Dosage: 4 MG, UNK
     Route: 048
     Dates: start: 20070125
  4. BETAHISTINE [Concomitant]
     Indication: DIZZINESS
     Dosage: 16 MG, TID
     Route: 048
     Dates: start: 20011116
  5. METHOTREXATE [Suspect]
     Indication: RHEUMATOID ARTHRITIS
     Dosage: 17.5 MG, QW
     Route: 048
     Dates: start: 20110207, end: 20120426
  6. FLUTICASONE PROPIONATE/SALMETEROL [Concomitant]
     Indication: ASTHMA
     Dosage: 1 G, UNK
  7. PRAVASTATIN [Suspect]
     Indication: BLOOD CHOLESTEROL
     Dosage: 40 MG, UNK
     Dates: start: 20120117
  8. OMEPRAZOLE [Concomitant]
     Indication: GASTROOESOPHAGEAL REFLUX DISEASE
     Dosage: 20 MG, BID
     Route: 048
  9. NAPROXEN [Concomitant]
     Indication: PAIN
     Dosage: 500 MG, BID
     Route: 048
  10. VALPROIC ACID [Concomitant]
     Indication: EPILEPSY
     Dosage: 800-1000 MG, QHS
     Route: 048
     Dates: start: 20110119
  11. FLUOXETINE [Concomitant]
     Indication: DEPRESSION
     Dosage: 40 MG, UNK
     Route: 048
     Dates: start: 19960308
  12. LEVOTHYROXINE SODIUM [Concomitant]
     Indication: HYPOTHYROIDISM
     Dosage: 50 UG, UNK
     Dates: start: 20060929
  13. LEUCOVORIN CALCIUM [Concomitant]
     Indication: RHEUMATOID ARTHRITIS
     Dosage: 5 MG, UNK
     Route: 048
     Dates: start: 20110119
  14. ALENDRONATE SODIUM [Suspect]
     Indication: OSTEOPOROSIS
     Dosage: 70 MG, UNK
     Dates: start: 20110525

REACTIONS (9)
  - COUGH [None]
  - HAEMOPTYSIS [None]
  - PNEUMONITIS [None]
  - ALOPECIA [None]
  - MALAISE [None]
  - LIVER FUNCTION TEST ABNORMAL [None]
  - CHEST DISCOMFORT [None]
  - DYSPNOEA [None]
  - EMOTIONAL DISTRESS [None]
